FAERS Safety Report 8008980-2 (Version None)
Quarter: 2011Q4

REPORT INFORMATION
  Report Type: 
  Country: None (occurrence: None)
  Receive Date: 20111227
  Receipt Date: 20111222
  Transmission Date: 20120403
  Serious: No
  Sender: FDA-Public Use
  Company Number: US-PFIZER INC-2011312268

PATIENT
  Sex: Male
  Weight: 78.005 kg

DRUGS (8)
  1. LYRICA [Suspect]
     Indication: FIBROMYALGIA
  2. CARTIA XT [Concomitant]
     Indication: HYPERTENSION
     Dosage: 240 MG, DAILY
  3. FEXOFENADINE [Concomitant]
     Indication: HYPERSENSITIVITY
     Dosage: 60 MG, 2X/DAY
  4. HYDROCHLOROTHIAZIDE [Concomitant]
     Indication: HYPERTENSION
     Dosage: UNK
  5. LEVOTHYROXINE [Concomitant]
     Indication: THYROID DISORDER
     Dosage: 0.075 MG, DAILY
  6. PRILOSEC [Concomitant]
     Indication: GASTROOESOPHAGEAL REFLUX DISEASE
     Dosage: UNK
  7. LISINOPRIL [Concomitant]
     Indication: HYPERTENSION
     Dosage: UNK
  8. LYRICA [Suspect]
     Indication: FACIAL NERVE DISORDER
     Dosage: UNK
     Route: 048
     Dates: start: 20110401, end: 20110907

REACTIONS (1)
  - RASH PRURITIC [None]
